FAERS Safety Report 8293742-1 (Version None)
Quarter: 2012Q2

REPORT INFORMATION
  Report Type: 
  Country: None (occurrence: None)
  Receive Date: 20120413
  Receipt Date: 20120403
  Transmission Date: 20120825
  Serious: Yes (Hospitalization)
  Sender: FDA-Public Use
  Company Number: WAES 1108USA01624

PATIENT
  Age: 46 Year
  Sex: Male

DRUGS (8)
  1. INVIRASE [Suspect]
     Indication: HIV INFECTION
     Dosage: 2000 MG/DAILY/PO
     Route: 048
     Dates: start: 20061026
  2. ZERIT [Concomitant]
  3. KALETRA [Suspect]
     Indication: HIV INFECTION
     Dosage: 4 DOSE/DAILY/PO
     Route: 048
     Dates: start: 20061026
  4. HALCION [Concomitant]
  5. VIDEX EC [Concomitant]
  6. ISENTRESS [Suspect]
     Indication: HIV INFECTION
     Dosage: 800 MG/DAILY/PO
     Route: 048
     Dates: start: 20080731
  7. KALETRA [Suspect]
     Indication: HIV INFECTION
     Dosage: 6 DOSE/DAILY/PO
     Route: 048
     Dates: start: 20020903, end: 20040804
  8. KALETRA [Suspect]
     Indication: HIV INFECTION
     Dosage: 6 DOSE/DAILY/PO
     Route: 048
     Dates: start: 20040831, end: 20060921

REACTIONS (9)
  - BLOOD ALKALINE PHOSPHATASE INCREASED [None]
  - ASPARTATE AMINOTRANSFERASE INCREASED [None]
  - PERICARDIAL EFFUSION [None]
  - ALANINE AMINOTRANSFERASE INCREASED [None]
  - PLEURAL EFFUSION [None]
  - GAMMA-GLUTAMYLTRANSFERASE INCREASED [None]
  - CARDIAC FAILURE [None]
  - HEPATIC FUNCTION ABNORMAL [None]
  - BLOOD LACTATE DEHYDROGENASE INCREASED [None]
